FAERS Safety Report 21296344 (Version 1)
Quarter: 2022Q3

REPORT INFORMATION
  Report Type: Spontaneous
  Country: US (occurrence: US)
  Receive Date: 20220906
  Receipt Date: 20220906
  Transmission Date: 20221027
  Serious: Yes (Death, Other)
  Sender: FDA-Public Use
  Company Number: US-ALKEM LABORATORIES LIMITED-US-ALKEM-2022-05584

PATIENT
  Age: 73 Year
  Sex: Male

DRUGS (2)
  1. TACROLIMUS [Suspect]
     Active Substance: TACROLIMUS
     Indication: Hepatic cirrhosis
     Dosage: 8-12 NG/ML
     Route: 065
  2. METHYLPREDNISOLONE [Suspect]
     Active Substance: METHYLPREDNISOLONE
     Indication: Hepatic cirrhosis
     Dosage: 2 MILLIGRAM/KILOGRAM/DAY
     Route: 065

REACTIONS (5)
  - Pneumonia [Fatal]
  - Septic shock [Fatal]
  - Cytomegalovirus viraemia [Unknown]
  - Graft versus host disease [Unknown]
  - Cryptosporidiosis infection [Unknown]
